FAERS Safety Report 5926911-3 (Version None)
Quarter: 2008Q4

REPORT INFORMATION
  Report Type: 
  Country: None (occurrence: None)
  Receive Date: 20081022
  Receipt Date: 20081017
  Transmission Date: 20090506
  Serious: Yes (Hospitalization)
  Sender: FDA-Public Use
  Company Number: CA-ASTRAZENECA-2008UW23124

PATIENT
  Age: 87 Year
  Sex: Female

DRUGS (4)
  1. OMEPRAZOLE [Suspect]
     Indication: GASTROOESOPHAGEAL REFLUX DISEASE
     Route: 048
     Dates: end: 20081014
  2. LIPITOR [Concomitant]
  3. STOOL SOFTENER [Concomitant]
  4. OXAZEPAM [Concomitant]
     Dosage: EVERY NIGHT AS REQUIRED

REACTIONS (2)
  - COLON CANCER [None]
  - DRUG INEFFECTIVE [None]
